FAERS Safety Report 23725026 (Version 2)
Quarter: 2024Q4

REPORT INFORMATION
  Report Type: Spontaneous
  Country: US (occurrence: US)
  Receive Date: 20240410
  Receipt Date: 20241021
  Transmission Date: 20250115
  Serious: No
  Sender: SANOFI AVENTIS
  Company Number: US-SA-SAC20240404000237

PATIENT
  Age: 52 Year
  Sex: Female

DRUGS (43)
  1. DUPIXENT [Suspect]
     Active Substance: DUPILUMAB
     Indication: Asthma
     Dosage: 300 MG, QOW
     Route: 058
     Dates: start: 20240206
  2. ALBUTEROL SULFATE [Concomitant]
     Active Substance: ALBUTEROL SULFATE
     Dosage: UNK
  3. ALBUTEROL SULFATE [Concomitant]
     Active Substance: ALBUTEROL SULFATE
  4. AZELASTINE [Concomitant]
     Active Substance: AZELASTINE
     Dosage: UNK
  5. AZELASTINE [Concomitant]
     Active Substance: AZELASTINE
  6. BACLOFEN [Concomitant]
     Active Substance: BACLOFEN
     Dosage: UNK
  7. BACLOFEN [Concomitant]
     Active Substance: BACLOFEN
     Dosage: 20MG
  8. CLOBETASOL [Concomitant]
     Active Substance: CLOBETASOL
     Dosage: UNK
  9. CLOBETASOL [Concomitant]
     Active Substance: CLOBETASOL
  10. DULOXETINE [Concomitant]
     Active Substance: DULOXETINE
     Dosage: UNK
  11. DULOXETINE [Concomitant]
     Active Substance: DULOXETINE
     Dosage: 60MG
  12. FAMOTIDINE [Concomitant]
     Active Substance: FAMOTIDINE
     Dosage: UNK
  13. FAMOTIDINE [Concomitant]
     Active Substance: FAMOTIDINE
     Dosage: 40MG
  14. FUROSEMIDE [Concomitant]
     Active Substance: FUROSEMIDE
     Dosage: UNK
  15. FUROSEMIDE [Concomitant]
     Active Substance: FUROSEMIDE
     Dosage: 40MG
  16. HYDROXYZINE HYDROCHLORIDE [Concomitant]
     Active Substance: HYDROXYZINE HYDROCHLORIDE
     Dosage: UNK
  17. HYDROXYZINE HYDROCHLORIDE [Concomitant]
     Active Substance: HYDROXYZINE HYDROCHLORIDE
  18. LORATADINE [Concomitant]
     Active Substance: LORATADINE
     Dosage: UNK
  19. LORATADINE [Concomitant]
     Active Substance: LORATADINE
     Dosage: 10MG
  20. MONTELUKAST [Concomitant]
     Active Substance: MONTELUKAST
     Dosage: UNK
  21. MONTELUKAST [Concomitant]
     Active Substance: MONTELUKAST
     Dosage: 10 MG
  22. PANTOPRAZOLE [Concomitant]
     Active Substance: PANTOPRAZOLE
     Dosage: UNK
  23. PANTOPRAZOLE [Concomitant]
     Active Substance: PANTOPRAZOLE
     Dosage: 20MG
  24. PREGABALIN [Concomitant]
     Active Substance: PREGABALIN
     Dosage: UNK
  25. PREGABALIN [Concomitant]
     Active Substance: PREGABALIN
     Dosage: 75MG
  26. QUETIAPINE [Concomitant]
     Active Substance: QUETIAPINE
     Dosage: UNK
  27. QUETIAPINE [Concomitant]
     Active Substance: QUETIAPINE
     Dosage: 25MG
  28. ROPINIROLE [Concomitant]
     Active Substance: ROPINIROLE
     Dosage: UNK
  29. ROPINIROLE [Concomitant]
     Active Substance: ROPINIROLE
     Dosage: 0.25MG
  30. ROSUVASTATIN [Concomitant]
     Active Substance: ROSUVASTATIN
     Dosage: UNK
  31. ROSUVASTATIN [Concomitant]
     Active Substance: ROSUVASTATIN
     Dosage: 5MG
  32. SUMATRIPTAN [Concomitant]
     Active Substance: SUMATRIPTAN
  33. SUMATRIPTAN [Concomitant]
     Active Substance: SUMATRIPTAN
     Dosage: UNK
  34. TIZANIDINE HYDROCHLORIDE [Concomitant]
     Active Substance: TIZANIDINE HYDROCHLORIDE
  35. TIZANIDINE HYDROCHLORIDE [Concomitant]
     Active Substance: TIZANIDINE HYDROCHLORIDE
  36. VITAMIN D3 [Concomitant]
     Active Substance: CHOLECALCIFEROL
  37. VITAMIN D3 [Concomitant]
     Active Substance: CHOLECALCIFEROL
  38. AMITRIPTYLINE [Concomitant]
     Active Substance: AMITRIPTYLINE
  39. DULOXETINE [Concomitant]
     Active Substance: DULOXETINE
     Dosage: UNK
  40. RESCUE [Concomitant]
     Dosage: 1TO2 DAYS PER WEEK
  41. ASPIRIN [Concomitant]
     Active Substance: ASPIRIN
  42. ASPIRIN [Concomitant]
     Active Substance: ASPIRIN
     Dosage: 81MG
  43. ONDANSETRON [Concomitant]
     Active Substance: ONDANSETRON
     Dosage: UNK

REACTIONS (5)
  - Impaired quality of life [Unknown]
  - Stress [Not Recovered/Not Resolved]
  - Asthma [Unknown]
  - Drug ineffective [Unknown]
  - Product dose omission in error [Unknown]

NARRATIVE: CASE EVENT DATE: 20240101
